FAERS Safety Report 9100771 (Version 2)
Quarter: 2013Q1

REPORT INFORMATION
  Report Type: Report from Study
  Country: FR (occurrence: FR)
  Receive Date: 20130215
  Receipt Date: 20130328
  Transmission Date: 20140127
  Serious: Yes (Hospitalization, Other)
  Sender: FDA-Public Use
  Company Number: FR-MPIJNJ-2012-04692

PATIENT
  Sex: 0

DRUGS (13)
  1. VELCADE [Suspect]
     Indication: MANTLE CELL LYMPHOMA
     Dosage: 2.13 MG, CYCLIC
     Route: 058
     Dates: start: 20120614, end: 20120624
  2. MABTHERA [Suspect]
     Indication: MANTLE CELL LYMPHOMA
     Dosage: 615 MG, CYCLIC
     Route: 042
     Dates: start: 20120614, end: 20120614
  3. LEVACT [Suspect]
     Indication: MANTLE CELL LYMPHOMA
     Dosage: 147.6 MG, UNK
     Route: 042
     Dates: start: 20120614, end: 20120615
  4. DEXAMETHASONE [Suspect]
     Indication: MANTLE CELL LYMPHOMA
     Dosage: 40 MG, CYCLIC
     Route: 042
     Dates: start: 20120615, end: 20120615
  5. GLUCOPHAGE                         /00082701/ [Concomitant]
     Indication: TYPE 2 DIABETES MELLITUS
     Dosage: 2000 MG, UNK
     Route: 048
     Dates: start: 2007, end: 20120624
  6. GLIMEPIRIDE [Concomitant]
     Indication: TYPE 2 DIABETES MELLITUS
     Dosage: 1 MG, UNK
     Route: 048
     Dates: start: 2007, end: 20120624
  7. DIFFU K [Concomitant]
     Indication: HYPOKALAEMIA
     Dosage: 600 MG, UNK
     Route: 048
     Dates: start: 2007, end: 20120624
  8. SOTALOL [Concomitant]
     Indication: TACHYCARDIA
     Dosage: 80 MG, UNK
     Route: 048
     Dates: start: 2007, end: 20120624
  9. ODRIK [Concomitant]
     Indication: HYPERTENSION
     Dosage: 2 MG, UNK
     Route: 048
     Dates: start: 2007, end: 20120624
  10. TAHOR [Concomitant]
     Indication: HYPERCHOLESTEROLAEMIA
     Dosage: 10 MG, UNK
     Route: 048
     Dates: start: 2007, end: 20120624
  11. ZELITREX                           /01269701/ [Concomitant]
     Indication: PROPHYLAXIS
     Dosage: 1000 MG, UNK
     Route: 048
     Dates: start: 20120618, end: 20120624
  12. ZOLPIDEM [Concomitant]
     Indication: INSOMNIA
     Dosage: 10 MG, UNK
     Route: 048
     Dates: start: 20120618, end: 20120624
  13. BACTRIM [Concomitant]
     Indication: PROPHYLAXIS
     Dosage: UNK
     Route: 048
     Dates: start: 20120618, end: 20120624

REACTIONS (4)
  - Hypoglycaemia [Recovered/Resolved]
  - Infection [Recovered/Resolved]
  - Chondrocalcinosis [Recovered/Resolved]
  - Pyrexia [Recovered/Resolved]
